FAERS Safety Report 17761865 (Version 5)
Quarter: 2020Q3

REPORT INFORMATION
  Report Type: Report from Study
  Country: None (occurrence: US)
  Receive Date: 20200508
  Receipt Date: 20200812
  Transmission Date: 20201102
  Serious: Yes (Hospitalization, Other)
  Sender: FDA-Public Use
  Company Number: US-ABBVIE-20K-163-3390587-00

PATIENT
  Age: 71 Year
  Sex: Female
  Weight: 54.93 kg

DRUGS (11)
  1. HUMIRA [Suspect]
     Active Substance: ADALIMUMAB
     Indication: PSORIATIC ARTHROPATHY
  2. SYNTHROID [Suspect]
     Active Substance: LEVOTHYROXINE SODIUM
     Indication: HYPOTHYROIDISM
     Route: 048
  3. VITAMIN B12 [Concomitant]
     Active Substance: CYANOCOBALAMIN
     Indication: PRODUCT USED FOR UNKNOWN INDICATION
  4. VITAMIN C [Concomitant]
     Active Substance: ASCORBIC ACID
     Indication: VITAMIN SUPPLEMENTATION
  5. HUMIRA [Suspect]
     Active Substance: ADALIMUMAB
     Indication: CROHN^S DISEASE
     Dosage: CITRATE FREE
     Route: 058
     Dates: start: 2015, end: 2015
  6. FOLIC ACID. [Concomitant]
     Active Substance: FOLIC ACID
     Indication: PRODUCT USED FOR UNKNOWN INDICATION
  7. VITAMIN D [Concomitant]
     Active Substance: VITAMIN D NOS
     Indication: PRODUCT USED FOR UNKNOWN INDICATION
  8. HUMIRA [Suspect]
     Active Substance: ADALIMUMAB
     Indication: PSORIATIC ARTHROPATHY
     Route: 058
     Dates: start: 2015
  9. METHOTREXATE. [Concomitant]
     Active Substance: METHOTREXATE
     Indication: PRODUCT USED FOR UNKNOWN INDICATION
  10. LEVOTHYROXINE. [Concomitant]
     Active Substance: LEVOTHYROXINE
     Indication: HYPOTHYROIDISM
  11. HUMIRA [Suspect]
     Active Substance: ADALIMUMAB
     Indication: CROHN^S DISEASE
     Dosage: GREATER THAN 2 YEARS AGO
     Route: 058

REACTIONS (15)
  - Infrequent bowel movements [Recovered/Resolved]
  - Crohn^s disease [Unknown]
  - Abdominal discomfort [Recovered/Resolved]
  - Hypothyroidism [Unknown]
  - Device issue [Recovered/Resolved]
  - Scar [Recovered/Resolved]
  - Injection site pain [Unknown]
  - Injection site erythema [Unknown]
  - Vitamin D decreased [Unknown]
  - Injection site pain [Unknown]
  - Intestinal obstruction [Recovered/Resolved]
  - Sepsis [Recovered/Resolved]
  - Basal cell carcinoma [Recovered/Resolved]
  - Dry skin [Not Recovered/Not Resolved]
  - Gastrointestinal bacterial overgrowth [Unknown]

NARRATIVE: CASE EVENT DATE: 2015
